FAERS Safety Report 7290707-3 (Version None)
Quarter: 2011Q1

REPORT INFORMATION
  Report Type: 
  Country: None (occurrence: None)
  Receive Date: 20110214
  Receipt Date: 20110208
  Transmission Date: 20110831
  Serious: Yes (Death, Hospitalization, Other)
  Sender: FDA-Public Use
  Company Number: IT-JNJFOC-20110200610

PATIENT
  Sex: Female

DRUGS (17)
  1. TAREG [Concomitant]
     Route: 048
  2. IMIPENEM AND CILASTATIN SODIUM [Suspect]
     Indication: PRODUCTIVE COUGH
     Route: 042
  3. LASIX [Concomitant]
     Route: 065
  4. MEPRAL [Concomitant]
     Route: 048
  5. SINTROM [Concomitant]
     Route: 065
  6. REVIVAN [Concomitant]
     Route: 065
  7. AMOXICILLIN AND CLAVULANATE POTASSIUM [Suspect]
     Indication: OROPHARYNGEAL PAIN
     Route: 048
  8. MYCOSTATIN [Concomitant]
     Indication: PRODUCT USED FOR UNKNOWN INDICATION
     Route: 048
  9. TAVANIC [Suspect]
     Indication: NEUTROPHILIA
     Route: 042
  10. CEFTAZIDIME [Suspect]
     Indication: CHRONIC OBSTRUCTIVE PULMONARY DISEASE
     Route: 042
  11. CEFTAZIDIME [Suspect]
     Indication: PRODUCTIVE COUGH
     Route: 042
  12. ISOPTIN [Concomitant]
     Route: 048
  13. MAALOX [Concomitant]
     Route: 065
  14. TAVANIC [Suspect]
     Route: 042
  15. CIPROFLOXACIN HYDROCHLORIDE [Concomitant]
     Indication: OROPHARYNGEAL PAIN
     Route: 048
  16. URBASON SOLUBILE [Concomitant]
     Route: 065
  17. LANITOP [Concomitant]
     Route: 065

REACTIONS (10)
  - CLOSTRIDIUM DIFFICILE COLITIS [None]
  - ACUTE RESPIRATORY FAILURE [None]
  - HYPOTENSION [None]
  - SOPOR [None]
  - ASTHENIA [None]
  - HYPERPYREXIA [None]
  - GENERALISED OEDEMA [None]
  - ANURIA [None]
  - ABDOMINAL PAIN [None]
  - PLEURAL EFFUSION [None]
